FAERS Safety Report 5311382-0 (Version None)
Quarter: 2007Q2

REPORT INFORMATION
  Report Type: 
  Country: None (occurrence: None)
  Receive Date: 20070426
  Receipt Date: 20070426
  Transmission Date: 20071010
  Serious: Yes (Other)
  Sender: FDA-Public Use
  Company Number: None

PATIENT
  Age: 89 Year
  Sex: Male
  Weight: 92.9874 kg

DRUGS (11)
  1. TRAVOPROST [Suspect]
     Indication: GLAUCOMA
     Dosage: 1 DROP OU HS
     Dates: start: 20061101, end: 20061201
  2. AMITRIPTYLINE HCL [Concomitant]
  3. ASPIRIN [Concomitant]
  4. ATENOLOL [Concomitant]
  5. BISACODYL [Concomitant]
  6. FINASTERIDE [Concomitant]
  7. FLUNISOLIDE [Concomitant]
  8. HYDROCHLOROTHIAZIDE [Concomitant]
  9. HYPROMELLOSE [Concomitant]
  10. NAPROXEN [Concomitant]
  11. TRAVOPROST [Concomitant]

REACTIONS (1)
  - OCULAR HYPERAEMIA [None]
